FAERS Safety Report 8115120-8 (Version None)
Quarter: 2012Q1

REPORT INFORMATION
  Report Type: 
  Country: None (occurrence: None)
  Receive Date: 20120206
  Receipt Date: 20120130
  Transmission Date: 20120608
  Serious: Yes (Hospitalization)
  Sender: FDA-Public Use
  Company Number: AT-JNJFOC-20120113343

PATIENT
  Age: 30 Year
  Sex: Male

DRUGS (4)
  1. DIAZEPAM [Suspect]
     Route: 065
     Dates: start: 20111117, end: 20111121
  2. HALDOL [Suspect]
     Indication: PRODUCT USED FOR UNKNOWN INDICATION
     Route: 048
     Dates: start: 20111117, end: 20111121
  3. DIAZEPAM [Suspect]
     Indication: PRODUCT USED FOR UNKNOWN INDICATION
     Route: 065
     Dates: start: 20111121, end: 20111124
  4. DIAZEPAM [Suspect]
     Route: 065
     Dates: start: 20111125

REACTIONS (2)
  - DYSKINESIA [None]
  - OROPHARYNGEAL SPASM [None]
